FAERS Safety Report 7768476-X (Version None)
Quarter: 2011Q3

REPORT INFORMATION
  Report Type: 
  Country: None (occurrence: None)
  Receive Date: 20110922
  Receipt Date: 20110209
  Transmission Date: 20111222
  Serious: Yes (Hospitalization)
  Sender: FDA-Public Use
  Company Number: US-ASTRAZENECA-2007UW05860

PATIENT
  Age: 636 Month
  Sex: Male
  Weight: 75.7 kg

DRUGS (4)
  1. RISPERDAL [Concomitant]
     Dosage: ? TABLET DAILY
     Dates: start: 20070101
  2. CLONOPIN [Concomitant]
     Dosage: 1 MG BID 2 MG
     Dates: start: 20070101
  3. SEROQUEL [Suspect]
     Route: 048
     Dates: end: 20040101
  4. SEROQUEL [Suspect]
     Indication: POST-TRAUMATIC STRESS DISORDER
     Dosage: 400 MG-600 MG A DAY
     Route: 048
     Dates: start: 20040101, end: 20050101

REACTIONS (1)
  - PANCREATITIS [None]
